FAERS Safety Report 20084361 (Version 1)
Quarter: 2021Q4

REPORT INFORMATION
  Report Type: Spontaneous
  Country: US (occurrence: US)
  Receive Date: 20211118
  Receipt Date: 20211118
  Transmission Date: 20220303
  Serious: No
  Sender: FDA-Public Use
  Company Number: US-PURACAP-2020EPC00376

PATIENT
  Age: 76 Year
  Sex: Female
  Weight: 72.56 kg

DRUGS (4)
  1. DOXYCYCLINE HYCLATE [Suspect]
     Active Substance: DOXYCYCLINE HYCLATE
     Indication: Lyme disease
     Dosage: 100 MG, 2X/DAY
     Route: 048
     Dates: start: 202011, end: 202011
  2. TRAVOPROST [Concomitant]
     Active Substance: TRAVOPROST
  3. LEVOTHYROXINE SODIUM [Concomitant]
     Active Substance: LEVOTHYROXINE SODIUM
  4. LEVOTHYROXINE SODIUM [Concomitant]
     Active Substance: LEVOTHYROXINE SODIUM

REACTIONS (5)
  - Oral mucosal blistering [Recovered/Resolved]
  - Feeding disorder [Recovered/Resolved]
  - Tongue discolouration [Recovered/Resolved]
  - Tongue disorder [Recovered/Resolved]
  - Drug hypersensitivity [Recovered/Resolved]

NARRATIVE: CASE EVENT DATE: 20201101
